FAERS Safety Report 7957741-9 (Version None)
Quarter: 2011Q4

REPORT INFORMATION
  Report Type: 
  Country: None (occurrence: None)
  Receive Date: 20111205
  Receipt Date: 20111201
  Transmission Date: 20120403
  Serious: Yes (Death, Other)
  Sender: FDA-Public Use
  Company Number: PHHY2011MY85241

PATIENT
  Sex: Female

DRUGS (9)
  1. TASIGNA [Suspect]
     Dosage: 400 MG, BID
     Route: 048
  2. TASIGNA [Suspect]
     Dosage: 400 MG, BID
     Route: 048
     Dates: end: 20110914
  3. DIAMICRON [Concomitant]
     Dosage: 40 MG, BID
  4. TASIGNA [Suspect]
     Indication: CHRONIC MYELOID LEUKAEMIA
     Route: 048
     Dates: start: 20110303
  5. TASIGNA [Suspect]
     Dosage: 200 MG, QD
     Route: 048
  6. VORICONAZOLE [Concomitant]
     Dosage: UNK UKN, UNK
  7. FOLIC ACID [Concomitant]
     Dosage: 5 MG, QD
  8. OXYCONTIN [Concomitant]
     Dosage: 20 MG, ONCE/SINGLE
  9. METFORMIN HCL [Concomitant]
     Dosage: 250 MG, BID

REACTIONS (11)
  - THROMBOCYTOPENIA [None]
  - HAEMORRHAGE [None]
  - LEUKOSTASIS [None]
  - BLAST CRISIS IN MYELOGENOUS LEUKAEMIA [None]
  - FEBRILE NEUTROPENIA [None]
  - BONE PAIN [None]
  - NEOPLASM PROGRESSION [None]
  - NEOPLASM MALIGNANT [None]
  - BRONCHOPULMONARY ASPERGILLOSIS [None]
  - PYREXIA [None]
  - ACUTE LEUKAEMIA [None]
